FAERS Safety Report 8976349 (Version 1)
Quarter: 2012Q4

REPORT INFORMATION
  Report Type: Report from Study
  Country: CA (occurrence: CA)
  Receive Date: 20121220
  Receipt Date: 20121220
  Transmission Date: 20130627
  Serious: Yes (Other)
  Sender: FDA-Public Use
  Company Number: CA-ROCHE-1167306

PATIENT
  Age: 58 Year
  Sex: Male

DRUGS (3)
  1. OMALIZUMAB [Suspect]
     Indication: ASTHMA
     Route: 065
  2. PREDNISONE [Concomitant]
     Route: 065
  3. SPIRIVA [Concomitant]

REACTIONS (12)
  - Asthma [Unknown]
  - Chills [Unknown]
  - Chest discomfort [Unknown]
  - Sputum increased [Unknown]
  - Pyrexia [Unknown]
  - Breath sounds abnormal [Unknown]
  - Increased upper airway secretion [Unknown]
  - Respiratory tract congestion [Unknown]
  - Nasal congestion [Unknown]
  - Drug ineffective [Unknown]
  - Wheezing [Unknown]
  - Dyspnoea [Unknown]
